FAERS Safety Report 5141034-1 (Version None)
Quarter: 2006Q4

REPORT INFORMATION
  Report Type: 
  Country: None (occurrence: None)
  Receive Date: 20061026
  Receipt Date: 20061013
  Transmission Date: 20070319
  Serious: Yes (Other)
  Sender: FDA-Public Use
  Company Number: 231308

PATIENT
  Age: 50 Year
  Sex: Male

DRUGS (1)
  1. RAPTIVA [Suspect]
     Indication: PSORIASIS
     Dates: start: 20060705

REACTIONS (3)
  - ARTHRITIS BACTERIAL [None]
  - GOUT [None]
  - TENOSYNOVITIS [None]
